FAERS Safety Report 9664828 (Version 1)
Quarter: 2013Q4

REPORT INFORMATION
  Report Type: Spontaneous
  Country: US (occurrence: US)
  Receive Date: 20131101
  Receipt Date: 20131101
  Transmission Date: 20140711
  Serious: Yes (Hospitalization)
  Sender: FDA-Public Use
  Company Number: US-B.I. PHARMACEUTICALS,INC./RIDGEFIELD-2013-BI-34835BP

PATIENT
  Sex: Male
  Weight: 79 kg

DRUGS (1)
  1. DULCOLAX TABLETS [Suspect]
     Indication: CONSTIPATION
     Dosage: 10 MG
     Route: 055
     Dates: start: 20130702

REACTIONS (3)
  - Pharyngitis [Recovered/Resolved]
  - Abdominal pain upper [Not Recovered/Not Resolved]
  - Tendon calcification [Recovered/Resolved]
